FAERS Safety Report 9307006 (Version 1)
Quarter: 2013Q2

REPORT INFORMATION
  Report Type: Spontaneous
  Country: FR (occurrence: FR)
  Receive Date: 20130523
  Receipt Date: 20130523
  Transmission Date: 20140414
  Serious: Yes (Hospitalization)
  Sender: FDA-Public Use
  Company Number: FR-009507513-1305FRA010656

PATIENT
  Age: 69 Year
  Sex: Male

DRUGS (1)
  1. ORGARAN [Suspect]
     Dosage: 750 IU, QD
     Dates: start: 20120730, end: 20120905

REACTIONS (3)
  - Catheter site haemorrhage [Recovered/Resolved]
  - Haematuria [Recovered/Resolved]
  - Post procedural haemorrhage [Recovered/Resolved]
